FAERS Safety Report 7544764 (Version 5)
Quarter: 2015Q3

REPORT INFORMATION
  Report Type: Spontaneous
  Country: FR (occurrence: None)
  Receive Date: 20100805
  Receipt Date: 20150810
  Transmission Date: 20151125
  Serious: Yes (Death)
  Sender: FDA-Public Use
  Company Number: 2010EU003714

PATIENT
  Age: 26 Year
  Sex: Female

DRUGS (5)
  1. ELISOR (PRAVASTATIN SODIUM) FORMULATION UNKNOWN [Suspect]
     Active Substance: PRAVASTATIN SODIUM
     Indication: IMMUNOSUPPRESSION
     Dosage: 1 DF, UID/QD, ORAL
     Route: 048
  2. IMUREL (AZATHIOPRINE) FORMULATION UNKNOWN [Suspect]
     Active Substance: AZATHIOPRINE SODIUM
     Indication: IMMUNOSUPPRESSION
     Dosage: 75 MG, UID/QD, ORAL
     Route: 048
  3. FOLIC ACID. [Concomitant]
     Active Substance: FOLIC ACID
  4. PROGRAF [Suspect]
     Active Substance: TACROLIMUS\TACROLIMUS ANHYDROUS
     Indication: IMMUNOSUPPRESSION
     Dosage: 3.5 MG, BID, ORAL
     Route: 048
     Dates: start: 201007
  5. CORTANCYL (PREDNISONE) FORMULATION UNKNOWN [Suspect]
     Active Substance: PREDNISONE
     Indication: IMMUNOSUPPRESSION
     Dosage: 7.5 MG, UID/QD, ORAL
     Route: 048

REACTIONS (3)
  - Pregnancy [None]
  - Maternal exposure during pregnancy [None]
  - Abortion spontaneous [None]

NARRATIVE: CASE EVENT DATE: 201007
